FAERS Safety Report 9792586 (Version 1)
Quarter: 2014Q1

REPORT INFORMATION
  Report Type: Spontaneous
  Country: US (occurrence: US)
  Receive Date: 20140102
  Receipt Date: 20140102
  Transmission Date: 20141002
  Serious: No
  Sender: FDA-Public Use
  Company Number: US-SA-2013SA099513

PATIENT
  Age: 64 Year
  Sex: Female

DRUGS (4)
  1. AUBAGIO [Suspect]
     Route: 048
     Dates: start: 20130925
  2. KEPPRA [Concomitant]
  3. OXYBUTYNIN [Concomitant]
  4. BENADRYL [Concomitant]

REACTIONS (1)
  - Asthenia [Unknown]
